FAERS Safety Report 6472928-2 (Version None)
Quarter: 2009Q4

REPORT INFORMATION
  Report Type: 
  Country: None (occurrence: None)
  Receive Date: 20091203
  Receipt Date: 20081218
  Transmission Date: 20100525
  Serious: No
  Sender: FDA-Public Use
  Company Number: US-AMGEN-KDL324769

PATIENT
  Sex: Female

DRUGS (2)
  1. ENBREL [Suspect]
     Indication: RHEUMATOID ARTHRITIS
     Route: 058
     Dates: start: 20081212
  2. PLAQUENIL [Concomitant]

REACTIONS (6)
  - ABNORMAL DREAMS [None]
  - BALANCE DISORDER [None]
  - FEELING ABNORMAL [None]
  - POOR QUALITY SLEEP [None]
  - SECRETION DISCHARGE [None]
  - SLEEP DISORDER [None]
